FAERS Safety Report 9932459 (Version 1)
Quarter: 2014Q1

REPORT INFORMATION
  Report Type: Spontaneous
  Country: GB (occurrence: None)
  Receive Date: 20140226
  Receipt Date: 20140226
  Transmission Date: 20141002
  Serious: Yes (Other)
  Sender: FDA-Public Use
  Company Number: AUR-APL-2014-01975

PATIENT
  Age: 51 Year
  Sex: Male
  Weight: 69 kg

DRUGS (1)
  1. SIMVASTATIN (SIMVASTATIN) [Suspect]
     Indication: DIABETES MELLITUS
     Route: 048
     Dates: start: 20080101, end: 20090101

REACTIONS (8)
  - Myalgia [None]
  - Muscular weakness [None]
  - Fatigue [None]
  - Exercise tolerance decreased [None]
  - Decreased activity [None]
  - Myositis [None]
  - Blood creatine phosphokinase increased [None]
  - Muscle atrophy [None]
